FAERS Safety Report 24026413 (Version 1)
Quarter: 2024Q2

REPORT INFORMATION
  Report Type: Spontaneous
  Country: US (occurrence: US)
  Receive Date: 20240628
  Receipt Date: 20240628
  Transmission Date: 20240715
  Serious: No
  Sender: FDA-Public Use
  Company Number: US-ABBVIE-5812768

PATIENT
  Sex: Male

DRUGS (1)
  1. HUMIRA [Suspect]
     Active Substance: ADALIMUMAB
     Indication: Crohn^s disease
     Dosage: START DATE TEXT: 2018 OR 2019?STOP DATE TEXT: 2021 OR 2022
     Route: 058

REACTIONS (2)
  - Drug specific antibody [Unknown]
  - Therapeutic product effect decreased [Unknown]
